FAERS Safety Report 7586220-6 (Version None)
Quarter: 2011Q2

REPORT INFORMATION
  Report Type: 
  Country: None (occurrence: None)
  Receive Date: 20110630
  Receipt Date: 20110630
  Transmission Date: 20111010
  Serious: Yes (Hospitalization)
  Sender: FDA-Public Use
  Company Number: None

PATIENT
  Age: 56 Year
  Sex: Male

DRUGS (7)
  1. ASPIRIN [Concomitant]
  2. FOSAMAX [Concomitant]
  3. DECADRON [Concomitant]
  4. ATENOLOL [Concomitant]
  5. LOVASTATIN [Concomitant]
  6. REVLIMID [Suspect]
     Indication: MULTIPLE MYELOMA
     Dosage: 25MG QDX21D/28D ORALLY
     Route: 048
     Dates: start: 20091201, end: 20110601
  7. LEVITRA [Concomitant]

REACTIONS (2)
  - COMMUNITY ACQUIRED INFECTION [None]
  - PNEUMONIA [None]
